FAERS Safety Report 5659165-6 (Version None)
Quarter: 2008Q1

REPORT INFORMATION
  Report Type: 
  Country: None (occurrence: None)
  Receive Date: 20080311
  Receipt Date: 20070522
  Transmission Date: 20080703
  Serious: No
  Sender: FDA-Public Use
  Company Number: US-BAYER-200711657BCC

PATIENT
  Age: 2 Year
  Sex: Female
  Weight: 15 kg

DRUGS (4)
  1. ALEVE [Suspect]
     Indication: ACCIDENTAL EXPOSURE
     Route: 048
     Dates: start: 20070522
  2. PULMICORT [Concomitant]
  3. NASONEX [Concomitant]
     Route: 045
  4. SINGULAIR [Concomitant]

REACTIONS (1)
  - UNEVALUABLE EVENT [None]
